FAERS Safety Report 25415374 (Version 2)
Quarter: 2025Q2

REPORT INFORMATION
  Report Type: Spontaneous
  Country: US (occurrence: US)
  Receive Date: 20250610
  Receipt Date: 20250617
  Transmission Date: 20250716
  Serious: Yes (Other)
  Sender: JOHNSON AND JOHNSON
  Company Number: US-JNJFOC-20250603490

PATIENT
  Sex: Female

DRUGS (3)
  1. REMICADE [Suspect]
     Active Substance: INFLIXIMAB
     Indication: Crohn^s disease
     Route: 041
     Dates: start: 2008, end: 2011
  2. METHOTREXATE [Concomitant]
     Active Substance: METHOTREXATE
     Indication: Product used for unknown indication
     Dates: start: 2019, end: 2024
  3. PREDNISONE [Concomitant]
     Active Substance: PREDNISONE
     Indication: Product used for unknown indication
     Dates: start: 2008, end: 2011

REACTIONS (19)
  - Anaphylactic reaction [Unknown]
  - Drug ineffective [Unknown]
  - Diarrhoea [Unknown]
  - Fatigue [Unknown]
  - Gastritis [Unknown]
  - Stress [Unknown]
  - Ehlers-Danlos syndrome [Unknown]
  - Endometriosis [Unknown]
  - Sleep apnoea syndrome [Unknown]
  - Fibromyalgia [Unknown]
  - Migraine [Unknown]
  - Vestibular migraine [Unknown]
  - Postural orthostatic tachycardia syndrome [Unknown]
  - Anxiety [Unknown]
  - Depression [Unknown]
  - Panic disorder [Unknown]
  - Post-traumatic stress disorder [Unknown]
  - Premenstrual dysphoric disorder [Unknown]
  - Weight fluctuation [Unknown]

NARRATIVE: CASE EVENT DATE: 20110101
